FAERS Safety Report 7990194-3 (Version None)
Quarter: 2011Q4

REPORT INFORMATION
  Report Type: 
  Country: None (occurrence: None)
  Receive Date: 20111219
  Receipt Date: 20111215
  Transmission Date: 20120403
  Serious: Yes (Death, Hospitalization)
  Sender: FDA-Public Use
  Company Number: JP-B.I. PHARMACEUTICALS,INC./RIDGEFIELD-2011-BP-28150NB

PATIENT
  Sex: Female
  Weight: 34.5 kg

DRUGS (4)
  1. TELMISARTAN AND HYDROCHLOROTHIAZIDE [Suspect]
     Indication: HYPERTENSION
     Route: 048
     Dates: start: 20100702, end: 20110609
  2. RABEPRAZOLE SODIUM [Concomitant]
     Route: 048
  3. ELCITONIN [Concomitant]
     Indication: OSTEOPOROSIS
     Dosage: 20 U
     Route: 058
  4. KASHIWADOL [Concomitant]
     Indication: BACK PAIN
     Dosage: 20 ML
     Route: 042

REACTIONS (1)
  - CHOLANGITIS ACUTE [None]
